FAERS Safety Report 6080310-5 (Version None)
Quarter: 2009Q1

REPORT INFORMATION
  Report Type: 
  Country: None (occurrence: None)
  Receive Date: 20090217
  Receipt Date: 20090205
  Transmission Date: 20090719
  Serious: Yes (Hospitalization)
  Sender: FDA-Public Use
  Company Number: GB-PFIZER INC-2009156389

PATIENT

DRUGS (1)
  1. SUNITINIB MALATE [Suspect]
     Indication: RENAL CELL CARCINOMA
     Dosage: 50 MG, UNK
     Route: 048
     Dates: start: 20081021, end: 20081205

REACTIONS (7)
  - CONSTIPATION [None]
  - HEADACHE [None]
  - MALAISE [None]
  - MUCOSITIS MANAGEMENT [None]
  - NAUSEA [None]
  - PULMONARY EMBOLISM [None]
  - VOMITING [None]
